FAERS Safety Report 4590308-1 (Version None)
Quarter: 2005Q1

REPORT INFORMATION
  Report Type: 
  Country: None (occurrence: None)
  Receive Date: 20050217
  Receipt Date: 20050209
  Transmission Date: 20050727
  Serious: Yes (Other)
  Sender: FDA-Public Use
  Company Number: CIP04002725

PATIENT
  Age: 61 Year
  Sex: Female
  Weight: 88.9 kg

DRUGS (13)
  1. ACTONEL [Suspect]
     Dosage: 35 MG ONCE WEEKLY, ORAL
     Route: 048
     Dates: start: 20031105, end: 20041124
  2. IMODIUM ^ANSSEN-CILAG^ (LOPERAMIDE HYDROCHLORIDE) [Concomitant]
  3. HYOSCYAMINE (HYOSCYAMINE) [Concomitant]
  4. LIPITOR [Concomitant]
  5. PROTONIX ^PHARMACIA^ (PANTOPRAZOLE) [Concomitant]
  6. ZOLOFT (SERTTRALINE HYDROCHLORIDE) [Concomitant]
  7. DRUG NOS [Concomitant]
  8. ARTHROTEC (MISOPROSTOL, DICLOFENAC SODIUIM) [Concomitant]
  9. ALLEGRA [Concomitant]
  10. ALBUTEROL [Concomitant]
  11. ADVAIR (SALMETEROL XINAFOATE, FLUTICASONE PROPIONATE) [Concomitant]
  12. FIBERALL (PSYLLIUM HYDROPHILIC MUCILLOID) [Concomitant]
  13. STOOL SOFTENER (DOCUSATE SODIUM) [Concomitant]

REACTIONS (2)
  - GASTRIC OUTLET OBSTRUCTION [None]
  - GASTRIC ULCER [None]
